FAERS Safety Report 17598597 (Version 3)
Quarter: 2020Q2

REPORT INFORMATION
  Report Type: Report from Study
  Country: US (occurrence: US)
  Receive Date: 20200330
  Receipt Date: 20200625
  Transmission Date: 20200713
  Serious: No
  Sender: FDA-Public Use
  Company Number: NVSC2020US082185

PATIENT
  Age: 58 Year
  Sex: Female

DRUGS (2)
  1. COSENTYX [Suspect]
     Active Substance: SECUKINUMAB
     Indication: PSORIATIC ARTHROPATHY
     Dosage: UNK, UNKNOWN
     Route: 065
  2. COSENTYX [Suspect]
     Active Substance: SECUKINUMAB
     Indication: PROSTATIC SPECIFIC ANTIGEN

REACTIONS (9)
  - Iritis [Unknown]
  - Pain in extremity [Unknown]
  - Drug ineffective [Unknown]
  - Limb discomfort [Unknown]
  - Feeling cold [Unknown]
  - Headache [Unknown]
  - Eye pain [Unknown]
  - Arthralgia [Unknown]
  - Musculoskeletal discomfort [Unknown]
